FAERS Safety Report 6312325-3 (Version None)
Quarter: 2009Q3

REPORT INFORMATION
  Report Type: 
  Country: None (occurrence: None)
  Receive Date: 20090817
  Receipt Date: 20080407
  Transmission Date: 20100115
  Serious: Yes (Life-Threatening)
  Sender: FDA-Public Use
  Company Number: FR-ROCHE-649764

PATIENT
  Sex: Female
  Weight: 74 kg

DRUGS (5)
  1. APRANAX [Suspect]
     Dosage: AT NOON AND EVENING ; PRESCRIBED FOR 5 DAYS
     Route: 065
     Dates: start: 20060222
  2. DERINOX (NAPHAZOLINE NITRATE/PREDNISOLONE) [Concomitant]
     Route: 045
  3. SOLMUCOL [Concomitant]
     Route: 065
  4. PANOTILE [Concomitant]
     Route: 001
  5. DOLIPRANE [Concomitant]
     Dosage: AS REQUIRED
     Route: 065

REACTIONS (4)
  - ANAPHYLACTIC SHOCK [None]
  - ANGIOEDEMA [None]
  - CELLULITIS STREPTOCOCCAL [None]
  - DEPRESSION [None]
